FAERS Safety Report 4667704-7 (Version None)
Quarter: 2005Q2

REPORT INFORMATION
  Report Type: 
  Country: None (occurrence: None)
  Receive Date: 20050519
  Receipt Date: 20050519
  Transmission Date: 20051028
  Serious: Yes (Hospitalization)
  Sender: FDA-Public Use
  Company Number: None

PATIENT
  Sex: Male
  Weight: 72.8477 kg

DRUGS (11)
  1. GEMCITABINE    100MG/ML     LILLY ONCOLOGY [Suspect]
     Indication: PANCREATIC CARCINOMA
     Dosage: 1000MG/M2   DAY 1 + 15   INTRAVENOU
     Route: 042
     Dates: start: 20050407, end: 20050407
  2. CISPLATIN [Suspect]
     Indication: PANCREATIC CARCINOMA
     Dosage: 20MG/M2   DAY 1 + 15    INTRAVENOU
     Route: 042
     Dates: start: 20050511, end: 20050511
  3. LISINOPRIL [Concomitant]
  4. COUMADIN [Concomitant]
  5. FERROUS GLUCONATE [Concomitant]
  6. ARANESP [Concomitant]
  7. NEULASTA [Concomitant]
  8. OXYCONTIN [Concomitant]
  9. VICODIN [Concomitant]
  10. CENTRUM [Concomitant]
  11. PANCREASE MT [Concomitant]

REACTIONS (3)
  - FEBRILE NEUTROPENIA [None]
  - INFECTION [None]
  - WHITE BLOOD CELL COUNT DECREASED [None]
